FAERS Safety Report 10623132 (Version 2)
Quarter: 2014Q4

REPORT INFORMATION
  Report Type: Report from Study
  Country: DE (occurrence: DE)
  Receive Date: 20141203
  Receipt Date: 20141211
  Transmission Date: 20150529
  Serious: Yes (Hospitalization)
  Sender: FDA-Public Use
  Company Number: DE-OTSUKA-US-2014-14318

PATIENT

DRUGS (6)
  1. ABILIFY MAINTENA [Suspect]
     Active Substance: ARIPIPRAZOLE
     Indication: SCHIZOPHRENIA, PARANOID TYPE
     Dosage: 400 MG MILLIGRAM(S), QM
     Route: 030
     Dates: start: 20141111
  2. ABILIFY [Concomitant]
     Active Substance: ARIPIPRAZOLE
     Indication: SCHIZOPHRENIA, PARANOID TYPE
     Dosage: 10 MG
     Route: 048
     Dates: start: 20141029
  3. QUETIAPINE [Concomitant]
     Active Substance: QUETIAPINE
     Indication: SCHIZOPHRENIA, PARANOID TYPE
     Dosage: 100 MG
     Route: 048
     Dates: start: 20140818
  4. QUETIAPINE [Concomitant]
     Active Substance: QUETIAPINE
     Dosage: 100 MG
     Route: 048
     Dates: start: 20140818
  5. FLUPENTIXOL-DECANOATE [Concomitant]
     Indication: SCHIZOPHRENIA, PARANOID TYPE
     Dosage: 0.7143 MG
     Route: 030
     Dates: start: 20121017, end: 20141027
  6. FLUPENTIXOL-TABLETS [Concomitant]
     Indication: SCHIZOPHRENIA, PARANOID TYPE
     Dosage: 5 MG MILLIGRAM(S), QD
     Route: 048
     Dates: start: 20121004, end: 20141029

REACTIONS (1)
  - Mania [Not Recovered/Not Resolved]

NARRATIVE: CASE EVENT DATE: 20141125
